FAERS Safety Report 12598306 (Version 1)
Quarter: 2016Q3

REPORT INFORMATION
  Report Type: Spontaneous
  Country: US (occurrence: US)
  Receive Date: 20160726
  Receipt Date: 20160726
  Transmission Date: 20161109
  Serious: Yes (Other)
  Sender: FDA-Public Use
  Company Number: US-SHIRE-US201609189

PATIENT
  Age: 18 Year
  Sex: Female
  Weight: 46.71 kg

DRUGS (3)
  1. LIALDA [Suspect]
     Active Substance: MESALAMINE
     Indication: CROHN^S DISEASE
     Dosage: 2.4 G, 1X/DAY:QD
     Route: 048
     Dates: start: 20160326, end: 2016
  2. PERIACTIN [Concomitant]
     Active Substance: CYPROHEPTADINE HYDROCHLORIDE
     Indication: DECREASED APPETITE
     Dosage: 4 MG, 3X/DAY:TID
     Route: 048
  3. LIALDA [Suspect]
     Active Substance: MESALAMINE
     Dosage: 4.8 G, 1X/DAY:QD
     Route: 048
     Dates: start: 2016, end: 20160719

REACTIONS (5)
  - Headache [Unknown]
  - Rectal haemorrhage [Unknown]
  - Weight decreased [Unknown]
  - Product use issue [Recovered/Resolved]
  - Amenorrhoea [Unknown]

NARRATIVE: CASE EVENT DATE: 201603
